FAERS Safety Report 6681973-3 (Version None)
Quarter: 2010Q2

REPORT INFORMATION
  Report Type: 
  Country: None (occurrence: None)
  Receive Date: 20100405
  Receipt Date: 20100331
  Transmission Date: 20101027
  Serious: Yes (Life-Threatening, Hospitalization, Other)
  Sender: FDA-Public Use
  Company Number: THYM-1001274

PATIENT
  Age: 5 Year
  Sex: Male
  Weight: 21 kg

DRUGS (6)
  1. THYMOGLOBULIN [Suspect]
     Indication: INTESTINAL TRANSPLANT
     Dosage: 25 MG, QOD, INTRAVENOUS; 25 MG, QD, INTRAVENOUS
     Route: 042
     Dates: start: 20090401, end: 20090405
  2. THYMOGLOBULIN [Suspect]
     Indication: INTESTINE TRANSPLANT REJECTION
     Dosage: 25 MG, QOD, INTRAVENOUS; 25 MG, QD, INTRAVENOUS
     Route: 042
     Dates: start: 20090401, end: 20090405
  3. THYMOGLOBULIN [Suspect]
     Indication: INTESTINAL TRANSPLANT
     Dosage: 25 MG, QOD, INTRAVENOUS; 25 MG, QD, INTRAVENOUS
     Route: 042
     Dates: start: 20090420, end: 20090425
  4. THYMOGLOBULIN [Suspect]
     Indication: INTESTINE TRANSPLANT REJECTION
     Dosage: 25 MG, QOD, INTRAVENOUS; 25 MG, QD, INTRAVENOUS
     Route: 042
     Dates: start: 20090420, end: 20090425
  5. TACROLIMUS [Concomitant]
  6. PREDNISOLONE [Concomitant]

REACTIONS (4)
  - FUNGAL PERITONITIS [None]
  - GASTRIC PERFORATION [None]
  - GRAFT LOSS [None]
  - TRANSPLANT REJECTION [None]
